FAERS Safety Report 10538511 (Version 2)
Quarter: 2014Q4

REPORT INFORMATION
  Report Type: Spontaneous
  Country: US (occurrence: US)
  Receive Date: 20141023
  Receipt Date: 20141023
  Transmission Date: 20150529
  Serious: Yes (Hospitalization, Other)
  Sender: FDA-Public Use
  Company Number: US-GLAXOSMITHKLINE-A0873066A

PATIENT
  Sex: Female

DRUGS (1)
  1. AVANDIA [Suspect]
     Active Substance: ROSIGLITAZONE MALEATE
     Indication: TYPE 2 DIABETES MELLITUS
     Dosage: 4 MG, BID
     Route: 048
     Dates: start: 199908, end: 20070129

REACTIONS (12)
  - Stroke in evolution [Unknown]
  - Myocardial infarction [Unknown]
  - Arteriosclerosis [Unknown]
  - Acute respiratory failure [Unknown]
  - Pulmonary oedema [Unknown]
  - Nephropathy [Unknown]
  - Sinus tachycardia [Unknown]
  - Cardiac failure congestive [Unknown]
  - Hypotension [Unknown]
  - Transient ischaemic attack [Not Recovered/Not Resolved]
  - Chronic kidney disease [Unknown]
  - Heart rate irregular [Unknown]

NARRATIVE: CASE EVENT DATE: 2007
